FAERS Safety Report 7843187-0 (Version None)
Quarter: 2011Q4

REPORT INFORMATION
  Report Type: 
  Country: None (occurrence: None)
  Receive Date: 20111020
  Receipt Date: 20111007
  Transmission Date: 20120403
  Serious: Yes (Other)
  Sender: FDA-Public Use
  Company Number: DK-1186920

PATIENT
  Sex: Female

DRUGS (23)
  1. BETOPTIC S [Concomitant]
  2. MAXIDEX [Suspect]
     Indication: POSTOPERATIVE CARE
     Dosage: SEE IMAGE
     Route: 047
     Dates: start: 20101208
  3. MAXIDEX [Suspect]
     Indication: POSTOPERATIVE CARE
     Dosage: SEE IMAGE
     Route: 047
     Dates: start: 20101210
  4. MAXIDEX [Suspect]
     Indication: POSTOPERATIVE CARE
     Dosage: SEE IMAGE
     Route: 047
     Dates: start: 20101214
  5. MAXIDEX [Suspect]
     Indication: POSTOPERATIVE CARE
     Dosage: SEE IMAGE
     Route: 047
     Dates: start: 20110121
  6. MAXIDEX [Suspect]
     Indication: POSTOPERATIVE CARE
     Dosage: SEE IMAGE
     Route: 047
     Dates: start: 20110221
  7. MAXIDEX [Suspect]
     Indication: POSTOPERATIVE CARE
     Dosage: SEE IMAGE
     Route: 047
     Dates: start: 20110314
  8. MAXIDEX [Suspect]
     Indication: POSTOPERATIVE CARE
     Dosage: SEE IMAGE
     Route: 047
     Dates: start: 20110323
  9. MAXIDEX [Suspect]
     Indication: POSTOPERATIVE CARE
     Dosage: SEE IMAGE
     Route: 047
     Dates: start: 20110417
  10. MAXIDEX [Suspect]
     Indication: POSTOPERATIVE CARE
     Dosage: SEE IMAGE
     Route: 047
     Dates: start: 20110128
  11. MAXIDEX [Suspect]
     Indication: POSTOPERATIVE CARE
     Dosage: SEE IMAGE
     Route: 047
     Dates: start: 20110214
  12. MAXIDEX [Suspect]
     Indication: POSTOPERATIVE CARE
     Dosage: SEE IMAGE
     Route: 047
     Dates: start: 20101230
  13. MAXIDEX [Suspect]
     Indication: POSTOPERATIVE CARE
     Dosage: SEE IMAGE
     Route: 047
     Dates: start: 20110207
  14. MAXIDEX [Suspect]
     Indication: POSTOPERATIVE CARE
     Dosage: SEE IMAGE
     Route: 047
     Dates: start: 20110406
  15. MAXIDEX [Suspect]
     Indication: POSTOPERATIVE CARE
     Dosage: SEE IMAGE
     Route: 047
     Dates: start: 20101227
  16. MAXIDEX [Suspect]
     Indication: POSTOPERATIVE CARE
     Dosage: SEE IMAGE
     Route: 047
     Dates: start: 20110124
  17. MAXIDEX [Suspect]
     Indication: POSTOPERATIVE CARE
     Dosage: SEE IMAGE
     Route: 047
     Dates: start: 20110422
  18. MAXIDEX [Suspect]
     Indication: POSTOPERATIVE CARE
     Dosage: SEE IMAGE
     Route: 047
     Dates: start: 20110201
  19. MAXIDEX [Suspect]
     Indication: POSTOPERATIVE CARE
     Dosage: SEE IMAGE
     Route: 047
     Dates: start: 20110304
  20. MAXIDEX [Suspect]
     Indication: POSTOPERATIVE CARE
     Dosage: SEE IMAGE
     Route: 047
     Dates: start: 20110309
  21. TRUSOPT [Concomitant]
  22. XALATAN [Concomitant]
  23. DIAMOX SRC [Concomitant]

REACTIONS (1)
  - CUSHING'S SYNDROME [None]
